FAERS Safety Report 8000796-6 (Version None)
Quarter: 2011Q4

REPORT INFORMATION
  Report Type: 
  Country: None (occurrence: None)
  Receive Date: 20111123
  Receipt Date: 20110801
  Transmission Date: 20120403
  Serious: Yes (Hospitalization)
  Sender: FDA-Public Use
  Company Number: 333058

PATIENT
  Age: 51 Year
  Sex: Female
  Weight: 84.8 kg

DRUGS (3)
  1. VICTOZA [Suspect]
     Indication: TYPE 2 DIABETES MELLITUS
     Dosage: SUBCUTANEOUS
     Route: 058
     Dates: start: 20101101, end: 20110713
  2. NORVASC [Concomitant]
  3. VALTURNA (ALISKIREN FUMURATE, VALSARTAN) [Concomitant]

REACTIONS (2)
  - PANCREATITIS ACUTE [None]
  - BLOOD GLUCOSE INCREASED [None]
